FAERS Safety Report 16685678 (Version 8)
Quarter: 2021Q1

REPORT INFORMATION
  Report Type: Spontaneous
  Country: US (occurrence: US)
  Receive Date: 20190809
  Receipt Date: 20210325
  Transmission Date: 20210419
  Serious: Yes (Hospitalization, Disabling, Other)
  Sender: FDA-Public Use
  Company Number: US-SA-2019SA212348

PATIENT
  Age: 48 Year
  Sex: Female

DRUGS (1)
  1. DUPIXENT [Suspect]
     Active Substance: DUPILUMAB
     Indication: ASTHMA
     Dosage: 300 MG, QOW
     Route: 058
     Dates: start: 201903, end: 2020

REACTIONS (25)
  - COVID-19 [Recovering/Resolving]
  - Respiration abnormal [Unknown]
  - Impaired healing [Unknown]
  - Chills [Not Recovered/Not Resolved]
  - Bedridden [Not Recovered/Not Resolved]
  - Nausea [Unknown]
  - Spinal fracture [Unknown]
  - Osteoporosis [Unknown]
  - Ankle fracture [Unknown]
  - Rash [Unknown]
  - Dizziness [Unknown]
  - Injection site pain [Unknown]
  - Product dose omission issue [Unknown]
  - Multiple fractures [Unknown]
  - Myalgia [Unknown]
  - Pyrexia [Unknown]
  - Vomiting [Unknown]
  - Fatigue [Unknown]
  - Asthma [Unknown]
  - Surgery [Unknown]
  - Dyspnoea [Unknown]
  - Headache [Unknown]
  - Vertigo [Not Recovered/Not Resolved]
  - Alopecia [Not Recovered/Not Resolved]
  - Back disorder [Unknown]

NARRATIVE: CASE EVENT DATE: 2019
